FAERS Safety Report 11984788 (Version 1)
Quarter: 2016Q1

REPORT INFORMATION
  Report Type: Spontaneous
  Country: US (occurrence: US)
  Receive Date: 20160201
  Receipt Date: 20160201
  Transmission Date: 20160526
  Serious: No
  Sender: FDA-Public Use
  Company Number: US-PFIZER INC-2016020472

PATIENT
  Age: 66 Year
  Sex: Male
  Weight: 76.64 kg

DRUGS (1)
  1. IBUPROFEN. [Suspect]
     Active Substance: IBUPROFEN
     Dosage: 800 MG, AS NEEDED

REACTIONS (2)
  - Drug effect delayed [Unknown]
  - Constipation [Unknown]
